FAERS Safety Report 7934425-4 (Version None)
Quarter: 2011Q4

REPORT INFORMATION
  Report Type: 
  Country: None (occurrence: None)
  Receive Date: 20111122
  Receipt Date: 20111117
  Transmission Date: 20120403
  Serious: Yes (Hospitalization)
  Sender: FDA-Public Use
  Company Number: US-GLAXOSMITHKLINE-A0953750A

PATIENT
  Age: 40 Year
  Sex: Male

DRUGS (3)
  1. VENTOLIN [Concomitant]
  2. PRILOSEC [Concomitant]
  3. ADVAIR DISKUS 100/50 [Suspect]
     Indication: ASTHMA
     Dosage: 1PUFF TWICE PER DAY
     Route: 055

REACTIONS (6)
  - FATIGUE [None]
  - INHALATION THERAPY [None]
  - CHEST DISCOMFORT [None]
  - PALPITATIONS [None]
  - HEART RATE INCREASED [None]
  - HEART RATE DECREASED [None]
